FAERS Safety Report 4876195-2 (Version None)
Quarter: 2006Q1

REPORT INFORMATION
  Report Type: 
  Country: None (occurrence: None)
  Receive Date: 20060110
  Receipt Date: 20060103
  Transmission Date: 20060701
  Serious: Yes (Congenital Anomaly, Other)
  Sender: FDA-Public Use
  Company Number: PHFR2006GB00455

PATIENT
  Sex: Male
  Weight: 5.5 kg

DRUGS (2)
  1. EPILIM [Suspect]
     Indication: EPILEPSY
     Dosage: UNK, UNK
     Route: 064
  2. TEGRETOL [Suspect]
     Dosage: UNK, UNK
     Route: 064

REACTIONS (9)
  - ABNORMAL BEHAVIOUR [None]
  - ANTICONVULSANT TOXICITY [None]
  - CAESAREAN SECTION [None]
  - DEVELOPMENTAL DELAY [None]
  - DRUG EXPOSURE DURING PREGNANCY [None]
  - FEEDING DISORDER NEONATAL [None]
  - FOETAL VALPROATE SYNDROME [None]
  - LARGE FOR DATES BABY [None]
  - TALIPES [None]
